FAERS Safety Report 11570309 (Version 1)
Quarter: 2015Q3

REPORT INFORMATION
  Report Type: Spontaneous
  Country: US (occurrence: None)
  Receive Date: 20150928
  Receipt Date: 20150928
  Transmission Date: 20151125
  Serious: No
  Sender: FDA-Public Use
  Company Number: None

PATIENT
  Age: 31 Year
  Sex: Female
  Weight: 63.5 kg

DRUGS (1)
  1. MIRENA [Suspect]
     Active Substance: LEVONORGESTREL
     Indication: CONTRACEPTION
     Dosage: INSERTED 9/2013
     Route: 067
     Dates: start: 20130916, end: 20150916

REACTIONS (6)
  - Irritability [None]
  - Stress [None]
  - Food craving [None]
  - Anger [None]
  - Depression [None]
  - Impatience [None]
